FAERS Safety Report 9413701 (Version 1)
Quarter: 2013Q3

REPORT INFORMATION
  Report Type: Spontaneous
  Country: KR (occurrence: None)
  Receive Date: 20130708
  Receipt Date: 20130708
  Transmission Date: 20140515
  Serious: Yes (Other)
  Sender: FDA-Public Use
  Company Number: 08-AUR-06566

PATIENT
  Age: 47 Year
  Sex: Female

DRUGS (2)
  1. MINOCYCLINE (MINOCYCLINE) [Suspect]
     Indication: MOUTH ULCERATION
  2. MINOCYCLINE (MINOCYCLINE) [Suspect]
     Indication: APHTHOUS STOMATITIS

REACTIONS (6)
  - Tooth discolouration [None]
  - Gingival discolouration [None]
  - Papillary thyroid cancer [None]
  - Biopsy thyroid gland abnormal [None]
  - Thyroid neoplasm [None]
  - Thyroid disorder [None]
